FAERS Safety Report 24851129 (Version 1)
Quarter: 2025Q1

REPORT INFORMATION
  Report Type: Spontaneous
  Country: US (occurrence: US)
  Receive Date: 20250116
  Receipt Date: 20250116
  Transmission Date: 20250409
  Serious: No
  Sender: INCYTE
  Company Number: US-INCYTE CORPORATION-2024IN013213

PATIENT

DRUGS (2)
  1. JAKAFI [Suspect]
     Active Substance: RUXOLITINIB
     Indication: Polycythaemia vera
     Dosage: 15 MILLIGRAM, BID
     Route: 048
  2. JAKAFI [Suspect]
     Active Substance: RUXOLITINIB
     Indication: Prostate cancer
     Dosage: 15 MILLIGRAM, BID
     Route: 048
     Dates: start: 20241213

REACTIONS (6)
  - Fatigue [Unknown]
  - Vision blurred [Unknown]
  - Hypoacusis [Unknown]
  - Constipation [Unknown]
  - Dizziness [Unknown]
  - Dyspnoea [Unknown]
